FAERS Safety Report 17927557 (Version 3)
Quarter: 2020Q3

REPORT INFORMATION
  Report Type: Report from Study
  Country: None (occurrence: US)
  Receive Date: 20200622
  Receipt Date: 20200731
  Transmission Date: 20201103
  Serious: Yes (Hospitalization, Other)
  Sender: FDA-Public Use
  Company Number: US-ABBVIE-20K-163-3448674-00

PATIENT
  Age: 26 Year
  Sex: Female

DRUGS (1)
  1. HUMIRA [Suspect]
     Active Substance: ADALIMUMAB
     Indication: CROHN^S DISEASE
     Dosage: DAY 1
     Route: 058
     Dates: start: 20200604, end: 20200604

REACTIONS (11)
  - Crohn^s disease [Recovering/Resolving]
  - Nausea [Recovering/Resolving]
  - Intestinal resection [Unknown]
  - Vomiting [Recovering/Resolving]
  - Decreased appetite [Not Recovered/Not Resolved]
  - Abnormal faeces [Unknown]
  - Abdominal pain upper [Recovering/Resolving]
  - Pain [Unknown]
  - Injection site erythema [Recovered/Resolved]
  - Weight decreased [Not Recovered/Not Resolved]
  - Appendicectomy [Unknown]

NARRATIVE: CASE EVENT DATE: 2020
